FAERS Safety Report 9778821 (Version 1)
Quarter: 2013Q4

REPORT INFORMATION
  Report Type: Spontaneous
  Country: US (occurrence: US)
  Receive Date: 20131223
  Receipt Date: 20131223
  Transmission Date: 20140711
  Serious: Yes (Hospitalization, Other)
  Sender: FDA-Public Use
  Company Number: US-ELI_LILLY_AND_COMPANY-US201312006598

PATIENT
  Age: 58 Year
  Sex: Female

DRUGS (1)
  1. EFFIENT [Suspect]
     Indication: ACUTE CORONARY SYNDROME
     Dosage: UNK

REACTIONS (3)
  - Chest pain [Unknown]
  - Coronary artery thrombosis [Unknown]
  - Drug dose omission [Unknown]
